FAERS Safety Report 13988791 (Version 1)
Quarter: 2017Q3

REPORT INFORMATION
  Report Type: Spontaneous
  Country: US (occurrence: None)
  Receive Date: 20170919
  Receipt Date: 20170919
  Transmission Date: 20171128
  Serious: Yes (Other)
  Sender: FDA-Public Use
  Company Number: None

PATIENT
  Age: 85 Year
  Sex: Female
  Weight: 52.16 kg

DRUGS (13)
  1. COQ10 [Concomitant]
     Active Substance: UBIDECARENONE
  2. PANTISIN [Concomitant]
  3. AZELASTINE HYDROCHLORIDE. [Suspect]
     Active Substance: AZELASTINE HYDROCHLORIDE
     Indication: POST-TRAUMATIC NECK SYNDROME
     Dosage: 1 SPRAY EACH NOSTRIL 2X DAILY
     Route: 045
     Dates: start: 20170707, end: 20170710
  4. LEVOTHRYOXINE [Concomitant]
     Active Substance: LEVOTHYROXINE
  5. DILL. [Concomitant]
     Active Substance: DILL
  6. AZELASTINE HYDROCHLORIDE. [Suspect]
     Active Substance: AZELASTINE HYDROCHLORIDE
     Indication: EUSTACHIAN TUBE DISORDER
     Dosage: 1 SPRAY EACH NOSTRIL 2X DAILY
     Route: 045
     Dates: start: 20170707, end: 20170710
  7. VITAMIN D3 [Concomitant]
     Active Substance: CHOLECALCIFEROL
  8. HERBS- ORGANIC [Concomitant]
  9. OREGANO. [Concomitant]
     Active Substance: OREGANO
  10. BASIL. [Concomitant]
     Active Substance: BASIL
  11. CRUSHED RED PEPPER [Concomitant]
  12. RALOXIFENE. [Concomitant]
     Active Substance: RALOXIFENE
  13. CINNAMON. [Concomitant]
     Active Substance: CINNAMON

REACTIONS (8)
  - Heart rate increased [None]
  - Asthenia [None]
  - Abdominal discomfort [None]
  - Weight decreased [None]
  - Headache [None]
  - Respiratory disorder [None]
  - Hypersensitivity [None]
  - Drug intolerance [None]
